FAERS Safety Report 4986101-8 (Version None)
Quarter: 2006Q2

REPORT INFORMATION
  Report Type: 
  Country: None (occurrence: None)
  Receive Date: 20060428
  Receipt Date: 20060421
  Transmission Date: 20061013
  Serious: Yes (Death)
  Sender: FDA-Public Use
  Company Number: US-JNJFOC-20060404962

PATIENT
  Age: 5 Month
  Sex: Male
  Weight: 5.98 kg

DRUGS (6)
  1. DEXTROMETHORPHAN [Suspect]
     Indication: UPPER RESPIRATORY TRACT CONGESTION
     Dosage: UNKNOWN
  2. PSEUDOEPHDRINE [Suspect]
     Indication: UPPER RESPIRATORY TRACT CONGESTION
     Dosage: UNKNOWN
  3. METOCLOPRAMIDE [Suspect]
     Indication: DRUG USE FOR UNKNOWN INDICATION
  4. CARBINOXAMINE MALEATE [Concomitant]
  5. UNSPECIFIED ANTIBIOTIC [Concomitant]
     Indication: EAR INFECTION
  6. APAP TAB [Concomitant]

REACTIONS (2)
  - DRUG TOXICITY [None]
  - PULMONARY CONGESTION [None]
